FAERS Safety Report 12432455 (Version 1)
Quarter: 2016Q2

REPORT INFORMATION
  Report Type: Spontaneous
  Country: US (occurrence: None)
  Receive Date: 20160602
  Receipt Date: 20160602
  Transmission Date: 20160815
  Serious: No
  Sender: FDA-Public Use
  Company Number: None

PATIENT
  Sex: Female
  Weight: 88 kg

DRUGS (7)
  1. MAGNESIUM [Concomitant]
     Active Substance: MAGNESIUM
  2. NIFEDIPINE. [Suspect]
     Active Substance: NIFEDIPINE
     Indication: HYPERTENSION
     Route: 048
     Dates: start: 20160426
  3. FLONASE [Concomitant]
     Active Substance: FLUTICASONE PROPIONATE
  4. HYDROCHLOROTHIAZIDE. [Concomitant]
     Active Substance: HYDROCHLOROTHIAZIDE
  5. AMLODIPINE [Concomitant]
     Active Substance: AMLODIPINE BESYLATE
  6. VITAMIN D3 [Concomitant]
     Active Substance: CHOLECALCIFEROL
  7. VITAMIN B12 [Concomitant]
     Active Substance: CYANOCOBALAMIN

REACTIONS (21)
  - Chest pain [None]
  - Dizziness [None]
  - Balance disorder [None]
  - Skin discolouration [None]
  - Joint swelling [None]
  - Dyspnoea [None]
  - Faeces discoloured [None]
  - Dysphagia [None]
  - Jaundice [None]
  - Weight increased [None]
  - Arthralgia [None]
  - Deafness [None]
  - Tinnitus [None]
  - Fatigue [None]
  - Eye pain [None]
  - Chest discomfort [None]
  - Constipation [None]
  - Insomnia [None]
  - Myalgia [None]
  - Gingival bleeding [None]
  - Asthenia [None]
